FAERS Safety Report 16957105 (Version 3)
Quarter: 2020Q1

REPORT INFORMATION
  Report Type: Spontaneous
  Country: CA (occurrence: CA)
  Receive Date: 20191024
  Receipt Date: 20200121
  Transmission Date: 20200409
  Serious: Yes (Other)
  Sender: FDA-Public Use
  Company Number: NVSC2019CA013938

PATIENT
  Age: 61 Year
  Sex: Female

DRUGS (3)
  1. PASIREOTIDE. [Suspect]
     Active Substance: PASIREOTIDE
     Dosage: 900 UG, BID
     Route: 058
  2. LIRAGLUTIDE [Concomitant]
     Active Substance: LIRAGLUTIDE
     Indication: HYPERGLYCAEMIA
     Dosage: 1.8 MG
     Route: 058
  3. PASIREOTIDE. [Suspect]
     Active Substance: PASIREOTIDE
     Indication: CUSHING^S SYNDROME
     Dosage: 600 UG, BID
     Route: 058

REACTIONS (4)
  - Vomiting [Unknown]
  - Adrenal insufficiency [Unknown]
  - Hyperglycaemia [Unknown]
  - Nausea [Unknown]
